FAERS Safety Report 10610584 (Version 1)
Quarter: 2014Q4

REPORT INFORMATION
  Report Type: Spontaneous
  Country: GB (occurrence: GB)
  Receive Date: 20141126
  Receipt Date: 20141126
  Transmission Date: 20150529
  Serious: Yes (Other)
  Sender: FDA-Public Use
  Company Number: PHFR2014GB008032

PATIENT
  Sex: Female

DRUGS (1)
  1. CLOMIPRAMINE [Suspect]
     Active Substance: CLOMIPRAMINE
     Indication: PRODUCT USED FOR UNKNOWN INDICATION
     Dosage: 10 MG, UNK
     Route: 065
     Dates: end: 20141102

REACTIONS (3)
  - Gastrointestinal carcinoma [Unknown]
  - Malaise [Unknown]
  - Dysphagia [Unknown]

NARRATIVE: CASE EVENT DATE: 201411
